FAERS Safety Report 21413686 (Version 1)
Quarter: 2022Q4

REPORT INFORMATION
  Report Type: Spontaneous
  Country: JP (occurrence: JP)
  Receive Date: 20221006
  Receipt Date: 20221006
  Transmission Date: 20230113
  Serious: Yes (Death, Other)
  Sender: FDA-Public Use
  Company Number: JP-NOVARTISPH-NVSC2022JP224897

PATIENT
  Age: 100 Year
  Sex: Female

DRUGS (3)
  1. RIVASTIGMINE [Suspect]
     Active Substance: RIVASTIGMINE
     Indication: Dementia
     Dosage: 4.5 MG (TAPE, INCLUDING POULTICE)
     Route: 062
  2. RIVASTIGMINE [Suspect]
     Active Substance: RIVASTIGMINE
     Dosage: 9 MG (TAPE, INCLUDING POULTICE)
     Route: 062
  3. RIVASTIGMINE [Suspect]
     Active Substance: RIVASTIGMINE
     Dosage: 13.5 MG (TAPE, INCLUDING POULTICE)
     Route: 062

REACTIONS (5)
  - Death [Fatal]
  - Loss of consciousness [Unknown]
  - Hypersomnia [Unknown]
  - Feeling abnormal [Unknown]
  - Off label use [Unknown]
